FAERS Safety Report 6746514-0 (Version None)
Quarter: 2010Q2

REPORT INFORMATION
  Report Type: 
  Country: None (occurrence: None)
  Receive Date: 20100528
  Receipt Date: 20090331
  Transmission Date: 20101027
  Serious: No
  Sender: FDA-Public Use
  Company Number: US-ASTRAZENECA-2009SE22738

PATIENT
  Sex: Female

DRUGS (3)
  1. PRILOSEC OTC [Suspect]
     Dosage: 1 TABLET, 2 /DAY FOR 14 DAYS
     Route: 048
     Dates: start: 20090317, end: 20090330
  2. NORVASC [Concomitant]
     Dosage: UNKNOWN
  3. LOVASTATIN [Concomitant]
     Dosage: UNKNOWN

REACTIONS (1)
  - MUSCLE SPASMS [None]
